FAERS Safety Report 8261037-8 (Version None)
Quarter: 2012Q2

REPORT INFORMATION
  Report Type: 
  Country: None (occurrence: None)
  Receive Date: 20120405
  Receipt Date: 20120402
  Transmission Date: 20120825
  Serious: Yes (Other)
  Sender: FDA-Public Use
  Company Number: US-JNJFOC-20120400960

PATIENT
  Sex: Female
  Weight: 66.23 kg

DRUGS (7)
  1. SIMPONI [Suspect]
     Indication: RHEUMATOID ARTHRITIS
     Route: 058
  2. CLARINEX [Concomitant]
     Indication: SEASONAL ALLERGY
  3. EPIPEN [Concomitant]
     Indication: FOOD ALLERGY
  4. CLARINEX [Concomitant]
     Indication: MULTIPLE ALLERGIES
  5. LEFLUNOMIDE [Concomitant]
     Indication: RHEUMATOID ARTHRITIS
  6. ALL OTHER THERAPEUTIC AGENTS [Concomitant]
     Indication: ECZEMA
     Route: 061
  7. ARIMIDEX [Concomitant]
     Indication: BREAST CANCER

REACTIONS (2)
  - MYOCARDIAL INFARCTION [None]
  - SJOGREN'S SYNDROME [None]
